FAERS Safety Report 12629871 (Version 1)
Quarter: 2016Q3

REPORT INFORMATION
  Report Type: Not Available
  Country: US (occurrence: US)
  Receive Date: 20160808
  Receipt Date: 20160808
  Transmission Date: 20161109
  Serious: Yes (Hospitalization)
  Sender: FDA-Public Use
  Company Number: US-ANIPHARMA-2016-US-005697

PATIENT
  Age: 54 Year
  Sex: Male

DRUGS (2)
  1. PHENYTOIN SODIUM (NON-SPECIFIC) [Suspect]
     Active Substance: PHENYTOIN SODIUM
     Dosage: 300 MG DAILY
     Route: 048
  2. ACETAMINOPHEN. [Concomitant]
     Active Substance: ACETAMINOPHEN
     Dosage: 650 MG EVERY 6 HOURS AS NEEDED
     Route: 048

REACTIONS (2)
  - Toxicity to various agents [Unknown]
  - Electrocardiogram abnormal [Recovered/Resolved]
